FAERS Safety Report 7608360-5 (Version None)
Quarter: 2011Q3

REPORT INFORMATION
  Report Type: 
  Country: None (occurrence: None)
  Receive Date: 20110714
  Receipt Date: 20110707
  Transmission Date: 20111222
  Serious: Yes (Other)
  Sender: FDA-Public Use
  Company Number: JP-ABBOTT-11P-087-0837441-00

PATIENT
  Sex: Female

DRUGS (6)
  1. CLARITHROMYCIN [Suspect]
     Indication: UPPER RESPIRATORY TRACT INFLAMMATION
     Dosage: 400 MG DAILY
     Route: 048
     Dates: start: 20110423, end: 20110430
  2. SILECE [Concomitant]
     Indication: INSOMNIA
     Dosage: 1 MG DAILY
     Route: 048
     Dates: start: 20110318
  3. AMLODIPINE [Concomitant]
     Indication: HYPERTENSION
     Dosage: 5 MG DAILY
     Route: 048
     Dates: start: 20080202
  4. PA COMBINATION  TABLET [Concomitant]
     Indication: UPPER RESPIRATORY TRACT INFLAMMATION
     Route: 048
     Dates: start: 20110423, end: 20110430
  5. ASTOMIN [Concomitant]
     Indication: UPPER RESPIRATORY TRACT INFLAMMATION
     Dosage: 30 MG DAILY
     Route: 048
     Dates: start: 20110423, end: 20110430
  6. NEWTOLIDE [Concomitant]
     Indication: HYPERTENSION
     Dosage: 25 MG DAILY
     Route: 048
     Dates: start: 20080404

REACTIONS (2)
  - MALAISE [None]
  - HEPATIC FUNCTION ABNORMAL [None]
